FAERS Safety Report 24563879 (Version 1)
Quarter: 2024Q4

REPORT INFORMATION
  Report Type: Spontaneous
  Country: CN (occurrence: CN)
  Receive Date: 20241030
  Receipt Date: 20241030
  Transmission Date: 20250114
  Serious: Yes (Other)
  Sender: ALKEM
  Company Number: CN-ALKEM LABORATORIES LIMITED-CN-ALKEM-2024-23928

PATIENT
  Sex: Female
  Weight: 3.49 kg

DRUGS (3)
  1. SIROLIMUS [Suspect]
     Active Substance: SIROLIMUS
     Indication: Immunophenotyping
     Dosage: 0.86 MILLIGRAM/SQ. METER (ADDED AT 3.5 MONTHS OF AGE )
     Route: 065
  2. METHYLPREDNISOLONE [Suspect]
     Active Substance: METHYLPREDNISOLONE
     Indication: Product used for unknown indication
     Dosage: 2 MILLIGRAM/KILOGRAM (AT 1.3 MONTH OF AGE)
     Route: 065
  3. PREDNISONE [Suspect]
     Active Substance: PREDNISONE
     Indication: Product used for unknown indication
     Dosage: 1.5 MILLIGRAM/KILOGRAM
     Route: 065

REACTIONS (12)
  - Acute respiratory failure [Recovered/Resolved]
  - COVID-19 pneumonia [Recovered/Resolved]
  - Relapsing fever [Recovered/Resolved]
  - Pneumonia [Recovered/Resolved]
  - Gingival swelling [Recovered/Resolved]
  - Diarrhoea [Recovered/Resolved]
  - Pyrexia [Recovered/Resolved]
  - Rotavirus infection [Recovered/Resolved]
  - Urinary tract infection [Recovered/Resolved]
  - Rash pustular [Recovered/Resolved]
  - Herpes virus infection [Recovered/Resolved]
  - Herpes simplex [Recovered/Resolved]
